FAERS Safety Report 4758727-8 (Version None)
Quarter: 2005Q3

REPORT INFORMATION
  Report Type: 
  Country: None (occurrence: None)
  Receive Date: 20050826
  Receipt Date: 20050812
  Transmission Date: 20060218
  Serious: Yes (Death, Life-Threatening, Hospitalization)
  Sender: FDA-Public Use
  Company Number: US132224

PATIENT
  Age: 63 Year
  Sex: Female

DRUGS (11)
  1. ENBREL [Suspect]
     Indication: RHEUMATOID ARTHRITIS
     Dosage: 25 MG, 2 IN 1 WEEKS, SC
     Route: 058
     Dates: start: 20030201, end: 20040830
  2. PREDNISONE [Concomitant]
  3. PANTOPRAZOLE SODIUM [Concomitant]
  4. DIPYRONE TAB [Concomitant]
  5. VERAPAMIL HCL [Concomitant]
  6. HYDROCHLOROTHIAZIDE, TRIAMTERENE (HYDROCHLOROTHIAZIDE, TRIAMTERENE) [Concomitant]
  7. VALSARTAN [Concomitant]
  8. DOMPERIDONE (DOMPERIDONE) [Concomitant]
  9. OXAZEPAM [Concomitant]
  10. ALLOPURINOL [Concomitant]
  11. HEPARIN FRACTION, SODIUM SALT [Concomitant]

REACTIONS (28)
  - ACUTE RESPIRATORY FAILURE [None]
  - ALANINE AMINOTRANSFERASE INCREASED [None]
  - ANAEMIA [None]
  - APALLIC SYNDROME [None]
  - ATRIAL FIBRILLATION [None]
  - BRONCHOPNEUMONIA [None]
  - CARDIAC ARREST [None]
  - CAUDA EQUINA SYNDROME [None]
  - CONUS MEDULLARIS SYNDROME [None]
  - DEPRESSED LEVEL OF CONSCIOUSNESS [None]
  - ENCEPHALITIS [None]
  - ENDOCARDITIS [None]
  - EXTRADURAL ABSCESS [None]
  - FIBRIN D DIMER INCREASED [None]
  - GASTROSTOMY [None]
  - GENERAL PHYSICAL HEALTH DETERIORATION [None]
  - HYPOXIC ENCEPHALOPATHY [None]
  - INTERVERTEBRAL DISCITIS [None]
  - LIVEDO RETICULARIS [None]
  - MYOCLONUS [None]
  - PSOAS ABSCESS [None]
  - PULMONARY EMBOLISM [None]
  - QUADRIPARESIS [None]
  - SPINAL OSTEOARTHRITIS [None]
  - STAPHYLOCOCCAL ABSCESS [None]
  - STAPHYLOCOCCAL SEPSIS [None]
  - TACHYARRHYTHMIA [None]
  - URINARY TRACT INFECTION [None]
